FAERS Safety Report 8481210-3 (Version None)
Quarter: 2012Q2

REPORT INFORMATION
  Report Type: 
  Country: None (occurrence: None)
  Receive Date: 20120618
  Receipt Date: 20120613
  Transmission Date: 20120825
  Serious: Yes (Hospitalization, Disabling)
  Sender: FDA-Public Use
  Company Number: 2011SP016567

PATIENT
  Age: 39 Year
  Sex: Female
  Weight: 68.0396 kg

DRUGS (8)
  1. SYNTHROID [Concomitant]
  2. NUVARING [Suspect]
     Indication: HORMONE LEVEL ABNORMAL
     Dates: start: 20010501
  3. NUVARING [Suspect]
     Indication: DYSFUNCTIONAL UTERINE BLEEDING
     Dates: start: 20010501
  4. NUVARING [Suspect]
     Indication: CONTRACEPTION
     Dates: start: 20010501
  5. NUVARING [Suspect]
     Indication: HORMONE LEVEL ABNORMAL
     Dates: start: 20061101, end: 20090401
  6. NUVARING [Suspect]
     Indication: DYSFUNCTIONAL UTERINE BLEEDING
     Dates: start: 20061101, end: 20090401
  7. NUVARING [Suspect]
     Indication: CONTRACEPTION
     Dates: start: 20061101, end: 20090401
  8. MULTI-VITAMIN [Concomitant]

REACTIONS (32)
  - HORMONE LEVEL ABNORMAL [None]
  - WITHDRAWAL BLEED [None]
  - BREAST TENDERNESS [None]
  - MYALGIA [None]
  - MENTAL DISORDER [None]
  - DEPRESSION [None]
  - ANXIETY [None]
  - NAUSEA [None]
  - IMPAIRED WORK ABILITY [None]
  - CEREBRAL ARTERY THROMBOSIS [None]
  - DYSFUNCTIONAL UTERINE BLEEDING [None]
  - BREAST PAIN [None]
  - ORAL CANDIDIASIS [None]
  - ANHEDONIA [None]
  - CAROTID ARTERY DISSECTION [None]
  - STRESS [None]
  - HYDRONEPHROSIS [None]
  - EMOTIONAL DISORDER [None]
  - CEREBRAL INFARCTION [None]
  - HAEMORRHAGIC STROKE [None]
  - FEAR OF DISEASE [None]
  - BREAST FIBROSIS [None]
  - BREAST DISCHARGE [None]
  - MENORRHAGIA [None]
  - RENAL CYST [None]
  - ISCHAEMIC STROKE [None]
  - CALCULUS URETERIC [None]
  - BREAST MASS [None]
  - VAGINAL HAEMORRHAGE [None]
  - NECK PAIN [None]
  - MUSCULOSKELETAL PAIN [None]
  - CAROTID ARTERY OCCLUSION [None]
